FAERS Safety Report 6717125-8 (Version None)
Quarter: 2010Q2

REPORT INFORMATION
  Report Type: 
  Country: None (occurrence: None)
  Receive Date: 20100510
  Receipt Date: 20100506
  Transmission Date: 20101027
  Serious: Yes (Death, Other)
  Sender: FDA-Public Use
  Company Number: US-BRISTOL-MYERS SQUIBB COMPANY-15093982

PATIENT
  Age: 83 Year
  Sex: Male

DRUGS (19)
  1. HEPARIN SODIUM [Suspect]
     Indication: TRANSIENT ISCHAEMIC ATTACK
     Dosage: 1DF=5000UNITS 18DEC07-18DEC07 21DEC07-21DEC07
     Route: 042
     Dates: start: 20071218, end: 20071221
  2. COUMADIN [Suspect]
     Indication: ANTICOAGULANT THERAPY
     Dosage: 5MG:21DEC07-22DEC07 7.5MG:23DEC07-24DEC07
     Route: 048
     Dates: start: 20071221
  3. HEPARIN SODIUM 25,000 UNITS IN DEXTROSE 5% [Suspect]
     Indication: TRANSIENT ISCHAEMIC ATTACK
     Dosage: 5%DEXTROSE 18DEC07-18DEC07;22DEC07-25DEC07
     Route: 042
     Dates: start: 20071218, end: 20071225
  4. ASPIRIN [Suspect]
     Indication: ANTICOAGULANT THERAPY
     Route: 048
     Dates: start: 20071219, end: 20071225
  5. PLAVIX [Suspect]
     Indication: ANTICOAGULANT THERAPY
     Route: 048
     Dates: start: 20071219, end: 20071225
  6. AGGRENOX [Concomitant]
     Dosage: THERAPY DISCONTINUED.
     Dates: end: 20071219
  7. CELEXA [Concomitant]
  8. GLYBURIDE [Concomitant]
  9. ALTACE [Concomitant]
  10. RESTORIL [Concomitant]
  11. NAPROSYN [Concomitant]
  12. CITALOPRAM HYDROBROMIDE [Concomitant]
  13. TEMAZEPAM [Concomitant]
  14. SIMVASTATIN [Concomitant]
  15. NORVASC [Concomitant]
  16. RISPERDAL [Concomitant]
  17. CLONIDINE [Concomitant]
  18. HYDRALAZINE HCL [Concomitant]
  19. LUPRON [Concomitant]

REACTIONS (9)
  - BACK PAIN [None]
  - BRADYCARDIA [None]
  - DYSPNOEA [None]
  - HAEMORRHAGE [None]
  - HYPOTENSION [None]
  - NAUSEA [None]
  - RETROPERITONEAL HAEMATOMA [None]
  - RETROPERITONEAL HAEMORRHAGE [None]
  - UNRESPONSIVE TO STIMULI [None]
